FAERS Safety Report 8153871-X (Version None)
Quarter: 2012Q1

REPORT INFORMATION
  Report Type: 
  Country: None (occurrence: None)
  Receive Date: 20120221
  Receipt Date: 20120208
  Transmission Date: 20120608
  Serious: Yes (Other)
  Sender: FDA-Public Use
  Company Number: JP-ELI_LILLY_AND_COMPANY-JP201108005868

PATIENT
  Age: 71 Year
  Sex: Female

DRUGS (1)
  1. FORTEO [Suspect]
     Dosage: UNK
     Route: 058
     Dates: start: 20110806, end: 20120201

REACTIONS (4)
  - FRACTURE [None]
  - INJECTION SITE ERYTHEMA [None]
  - ASTHENIA [None]
  - INJECTION SITE PAIN [None]
